FAERS Safety Report 15116451 (Version 2)
Quarter: 2018Q3

REPORT INFORMATION
  Report Type: Spontaneous
  Country: FR (occurrence: FR)
  Receive Date: 20180706
  Receipt Date: 20180730
  Transmission Date: 20181010
  Serious: Yes (Other)
  Sender: FDA-Public Use
  Company Number: FR-PFIZER INC-2018273222

PATIENT
  Age: 72 Year
  Sex: Female

DRUGS (6)
  1. TANGANIL [Concomitant]
     Active Substance: ACETYLLEUCINE
     Indication: DIZZINESS
     Dosage: UNK
     Dates: start: 2016
  2. DELURSAN [Concomitant]
     Active Substance: URSODIOL
     Indication: CHOLELITHIASIS
     Dosage: UNK
  3. VERAPAMIL [Suspect]
     Active Substance: VERAPAMIL HYDROCHLORIDE
     Indication: ATRIAL FIBRILLATION
     Dosage: 1 DF, DAILY
     Dates: start: 20180614
  4. PYOSTACINE [Concomitant]
     Active Substance: PRISTINAMYCIN
     Indication: PROPHYLAXIS
     Dosage: UNK
  5. SURBRONC [Concomitant]
     Active Substance: AMBROXOL HYDROCHLORIDE
     Indication: BRONCHITIS CHRONIC
     Dosage: UNK
     Dates: start: 2010
  6. CORDARONE [Suspect]
     Active Substance: AMIODARONE HYDROCHLORIDE
     Dosage: 200 MG, UNK

REACTIONS (21)
  - Malaise [Unknown]
  - Fatigue [Unknown]
  - Atrial fibrillation [Unknown]
  - Tinnitus [Unknown]
  - Hypoaesthesia [Unknown]
  - Osteoarthritis [Unknown]
  - Vomiting [Unknown]
  - Dizziness [Unknown]
  - Dehydration [Unknown]
  - Vision blurred [Unknown]
  - Somnolence [Unknown]
  - Hypotension [Unknown]
  - Bradycardia [Unknown]
  - Hepatic pain [Unknown]
  - Nausea [Unknown]
  - Cough [Unknown]
  - Asthenia [Unknown]
  - Wrong technique in product usage process [Unknown]
  - Headache [Unknown]
  - Constipation [Unknown]
  - Product use issue [Unknown]

NARRATIVE: CASE EVENT DATE: 20180327
